FAERS Safety Report 19421773 (Version 1)
Quarter: 2021Q2

REPORT INFORMATION
  Report Type: Spontaneous
  Country: CN (occurrence: CN)
  Receive Date: 20210616
  Receipt Date: 20210616
  Transmission Date: 20210717
  Serious: Yes (Other)
  Sender: FDA-Public Use
  Company Number: CN-ASTELLAS-2021US022002

PATIENT
  Sex: Male

DRUGS (3)
  1. ZOLADEX [Suspect]
     Active Substance: GOSERELIN ACETATE
     Indication: PROSTATE CANCER
     Route: 058
     Dates: start: 20170309
  2. ZOLADEX [Suspect]
     Active Substance: GOSERELIN ACETATE
     Route: 058
  3. XTANDI [Suspect]
     Active Substance: ENZALUTAMIDE
     Indication: HORMONE-REFRACTORY PROSTATE CANCER
     Route: 048
     Dates: start: 20210521, end: 20210611

REACTIONS (6)
  - Swelling [Not Recovered/Not Resolved]
  - Swelling of eyelid [Not Recovered/Not Resolved]
  - Swelling face [Not Recovered/Not Resolved]
  - Erythema of eyelid [Not Recovered/Not Resolved]
  - Visual impairment [Unknown]
  - Drug hypersensitivity [Unknown]

NARRATIVE: CASE EVENT DATE: 202106
